FAERS Safety Report 24804081 (Version 1)
Quarter: 2025Q1

REPORT INFORMATION
  Report Type: Spontaneous
  Country: IR (occurrence: IR)
  Receive Date: 20250103
  Receipt Date: 20250103
  Transmission Date: 20250408
  Serious: Yes (Death, Life-Threatening, Hospitalization)
  Sender: ACCORD
  Company Number: IR-MLMSERVICE-20241223-PI317427-00182-1

PATIENT
  Age: 12 Year
  Sex: Female

DRUGS (6)
  1. IRINOTECAN [Suspect]
     Active Substance: IRINOTECAN
     Indication: Rhabdomyosarcoma
     Dates: start: 2021, end: 2021
  2. VINCRISTINE [Suspect]
     Active Substance: VINCRISTINE
     Indication: Rhabdomyosarcoma
     Dates: start: 2021, end: 2021
  3. IRINOTECAN [Suspect]
     Active Substance: IRINOTECAN
     Indication: Metastases to peritoneum
     Dates: start: 2021, end: 2021
  4. IRINOTECAN [Suspect]
     Active Substance: IRINOTECAN
     Indication: Metastases to liver
     Dates: start: 2021, end: 2021
  5. VINCRISTINE [Suspect]
     Active Substance: VINCRISTINE
     Indication: Metastases to peritoneum
     Dates: start: 2021, end: 2021
  6. VINCRISTINE [Suspect]
     Active Substance: VINCRISTINE
     Indication: Metastases to liver
     Dates: start: 2021, end: 2021

REACTIONS (7)
  - Hepatic encephalopathy [Unknown]
  - Renal failure [Unknown]
  - Electrolyte imbalance [Unknown]
  - Colitis [Unknown]
  - Posterior reversible encephalopathy syndrome [Unknown]
  - Azotaemia [Unknown]
  - Neutropenic sepsis [Fatal]

NARRATIVE: CASE EVENT DATE: 20210101
